FAERS Safety Report 17879545 (Version 3)
Quarter: 2020Q2

REPORT INFORMATION
  Report Type: Spontaneous
  Country: JP (occurrence: JP)
  Receive Date: 20200610
  Receipt Date: 20200625
  Transmission Date: 20200714
  Serious: Yes (Other)
  Sender: FDA-Public Use
  Company Number: NVSJ2020JP005479

PATIENT
  Age: 66 Year
  Sex: Female

DRUGS (3)
  1. AMVALO COMBINATION TABLET [Suspect]
     Active Substance: AMLODIPINE\VALSARTAN
     Indication: HYPERTENSION
     Dosage: 1 DF
     Route: 048
  2. REFLEX [Suspect]
     Active Substance: MIRTAZAPINE
     Dosage: UNK
     Route: 048
     Dates: end: 202006
  3. REFLEX [Suspect]
     Active Substance: MIRTAZAPINE
     Indication: DEPRESSION
     Dosage: UNK
     Route: 048
     Dates: start: 2020

REACTIONS (1)
  - Tardive dyskinesia [Not Recovered/Not Resolved]
